FAERS Safety Report 5988849-5 (Version None)
Quarter: 2008Q4

REPORT INFORMATION
  Report Type: 
  Country: None (occurrence: None)
  Receive Date: 20081210
  Receipt Date: 20080226
  Transmission Date: 20090506
  Serious: Yes (Hospitalization)
  Sender: FDA-Public Use
  Company Number: US-AMGEN-US260805

PATIENT
  Sex: Male
  Weight: 93.1 kg

DRUGS (1)
  1. ENBREL [Suspect]
     Indication: PSORIASIS
     Route: 058
     Dates: start: 20070609, end: 20071224

REACTIONS (2)
  - INTRASPINAL ABSCESS [None]
  - STAPHYLOCOCCAL SEPSIS [None]
